FAERS Safety Report 11169684 (Version 2)
Quarter: 2015Q2

REPORT INFORMATION
  Report Type: Spontaneous
  Country: VE (occurrence: VE)
  Receive Date: 20150605
  Receipt Date: 20150620
  Transmission Date: 20150821
  Serious: Yes (Hospitalization)
  Sender: FDA-Public Use
  Company Number: PHHY2015VE067402

PATIENT
  Age: 68 Year
  Sex: Male

DRUGS (3)
  1. LEPONEX [Suspect]
     Active Substance: CLOZAPINE
     Dosage: FEW MILIGRAMS
     Route: 065
  2. SINOGAN [Concomitant]
     Active Substance: LEVOMEPROMAZINE
     Indication: SCHIZOPHRENIA, PARANOID TYPE
     Dosage: 300 MG, TID (MORNING, AFTERNOON AND NIGHT)
     Route: 065
     Dates: start: 2006
  3. LEPONEX [Suspect]
     Active Substance: CLOZAPINE
     Indication: SCHIZOPHRENIA, PARANOID TYPE
     Dosage: 500 MG DAILY
     Route: 065

REACTIONS (7)
  - Anxiety [Unknown]
  - Confusional state [Unknown]
  - Hallucination [Unknown]
  - Insomnia [Unknown]
  - Aggression [Unknown]
  - Emotional disorder [Unknown]
  - General physical health deterioration [Unknown]
